FAERS Safety Report 21594388 (Version 1)
Quarter: 2022Q4

REPORT INFORMATION
  Report Type: Spontaneous
  Country: GB (occurrence: GB)
  Receive Date: 20221115
  Receipt Date: 20221115
  Transmission Date: 20230112
  Serious: Yes (Other)
  Sender: FDA-Public Use
  Company Number: None

PATIENT
  Sex: Female

DRUGS (1)
  1. KADCYLA [Suspect]
     Active Substance: ADO-TRASTUZUMAB EMTANSINE
     Indication: Product used for unknown indication
     Dosage: CYCLE 1 - 3.72 MG/KG; CYCLE 2 - 3.85 MG/KG AND CYCLE 4 - 4.05MG/KG
     Route: 065

REACTIONS (2)
  - Overdose [Unknown]
  - Neuropathy peripheral [Unknown]
